FAERS Safety Report 10035235 (Version 1)
Quarter: 2014Q1

REPORT INFORMATION
  Report Type: Spontaneous
  Country: ID (occurrence: ID)
  Receive Date: 20140325
  Receipt Date: 20140325
  Transmission Date: 20141002
  Serious: Yes (Death)
  Sender: FDA-Public Use
  Company Number: ID-BAYER-2014-041268

PATIENT
  Sex: Male

DRUGS (2)
  1. NEXAVAR [Suspect]
     Indication: HEPATIC CANCER STAGE IV
     Dosage: 400 MG, QD,
     Route: 048
     Dates: start: 20131113, end: 20140317
  2. NEXAVAR [Suspect]
     Indication: METASTASES TO CENTRAL NERVOUS SYSTEM

REACTIONS (4)
  - Jaundice [None]
  - Abdominal distension [None]
  - Lacrimation increased [None]
  - Death [Fatal]
